FAERS Safety Report 9466421 (Version 2)
Quarter: 2013Q4

REPORT INFORMATION
  Report Type: Spontaneous
  Country: GB (occurrence: GB)
  Receive Date: 20130820
  Receipt Date: 20131004
  Transmission Date: 20140711
  Serious: Yes (Other)
  Sender: FDA-Public Use
  Company Number: GB-BAYER-2013-100205

PATIENT
  Age: 41 Year
  Sex: Female
  Weight: 70 kg

DRUGS (6)
  1. MIRENA [Suspect]
     Dosage: 20 MCG/24HR, CONT
     Route: 015
     Dates: start: 20130807
  2. HYDROXYCHLOROQUINE [Concomitant]
  3. AMITRIPTYLINE [Concomitant]
  4. DICLO [DICLOFENAC SODIUM] [Concomitant]
  5. PARACETAMOL [Concomitant]
  6. CODEINE [Concomitant]

REACTIONS (2)
  - Tachycardia [Not Recovered/Not Resolved]
  - Heart rate increased [Not Recovered/Not Resolved]
